FAERS Safety Report 4754263-3 (Version None)
Quarter: 2005Q3

REPORT INFORMATION
  Report Type: 
  Country: None (occurrence: None)
  Receive Date: 20050825
  Receipt Date: 20050811
  Transmission Date: 20060218
  Serious: Yes (Hospitalization)
  Sender: FDA-Public Use
  Company Number: 0104-2404

PATIENT
  Sex: Female

DRUGS (2)
  1. ADVICOR [Suspect]
     Indication: HIGH DENSITY LIPOPROTEIN DECREASED
     Dates: start: 20050705, end: 20050720
  2. MECLIZINE [Concomitant]

REACTIONS (6)
  - DIZZINESS POSTURAL [None]
  - HEART RATE INCREASED [None]
  - HYPERTENSION [None]
  - NAUSEA [None]
  - VERTIGO [None]
  - VOMITING [None]
